FAERS Safety Report 11929863 (Version 2)
Quarter: 2016Q1

REPORT INFORMATION
  Report Type: Spontaneous
  Country: DE (occurrence: DE)
  Receive Date: 20160120
  Receipt Date: 20160212
  Transmission Date: 20160526
  Serious: Yes (Hospitalization)
  Sender: FDA-Public Use
  Company Number: DE-SUN PHARMACEUTICAL INDUSTRIES LTD-2016RR-110032

PATIENT

DRUGS (1)
  1. CEFUROX BASICS 500 MG FILMTABLETTEN [Suspect]
     Active Substance: CEFUROXIME
     Indication: ABSCESS
     Dosage: 500 MG, BID
     Route: 048
     Dates: start: 20151214, end: 20151221

REACTIONS (2)
  - Vomiting [Recovered/Resolved]
  - Vertigo [Recovered/Resolved]

NARRATIVE: CASE EVENT DATE: 20151221
